FAERS Safety Report 7744365-1 (Version None)
Quarter: 2011Q3

REPORT INFORMATION
  Report Type: 
  Country: None (occurrence: None)
  Receive Date: 20110912
  Receipt Date: 20110908
  Transmission Date: 20111222
  Serious: Yes (Death)
  Sender: FDA-Public Use
  Company Number: TN-SANOFI-AVENTIS-2011SA058481

PATIENT
  Age: 43 Year
  Sex: Male

DRUGS (6)
  1. FUROSEMIDE [Concomitant]
     Route: 048
     Dates: start: 20100501, end: 20110701
  2. ASPIRIN [Concomitant]
     Route: 048
     Dates: start: 20100501, end: 20110701
  3. PLAVIX [Suspect]
     Indication: PERCUTANEOUS CORONARY INTERVENTION
     Route: 048
     Dates: start: 20100501, end: 20110701
  4. PLAVIX [Suspect]
     Indication: STENT PLACEMENT
     Route: 048
     Dates: start: 20100501, end: 20110701
  5. PLAVIX [Suspect]
     Indication: MYOCARDIAL INFARCTION
     Route: 048
     Dates: start: 20100501, end: 20110701
  6. ATORVASTATIN CALCIUM [Concomitant]
     Route: 048
     Dates: start: 20100501, end: 20110701

REACTIONS (2)
  - COUGH [None]
  - PULMONARY TUBERCULOSIS [None]
